FAERS Safety Report 8903135 (Version 1)
Quarter: 2012Q4

REPORT INFORMATION
  Report Type: 
  Country: GB (occurrence: GB)
  Receive Date: 20121112
  Receipt Date: 20121112
  Transmission Date: 20130627
  Serious: Yes (Other)
  Sender: FDA-Public Use
  Company Number: GB-009507513-1211GBR000232

PATIENT
  Sex: Female

DRUGS (2)
  1. MERCILON [Suspect]
     Indication: CONTRACEPTION
     Dosage: UNK
     Route: 048
     Dates: start: 20120813
  2. ELLAONE [Suspect]
     Indication: CONTRACEPTION
     Dosage: 30 mg, UNK
     Route: 048
     Dates: start: 20120813

REACTIONS (1)
  - Unintended pregnancy [Unknown]
